FAERS Safety Report 5479282-3 (Version None)
Quarter: 2007Q4

REPORT INFORMATION
  Report Type: 
  Country: None (occurrence: None)
  Receive Date: 20071003
  Receipt Date: 20070918
  Transmission Date: 20080405
  Serious: Yes (Death)
  Sender: FDA-Public Use
  Company Number: 2006S1011918

PATIENT
  Age: 6 Year
  Sex: Female

DRUGS (6)
  1. CLONIDINE HCL [Suspect]
     Indication: ATTENTION DEFICIT/HYPERACTIVITY DISORDER
     Dosage: 0.05 MG; 3 TIMES A DAY; ORAL; 0.2 MG AT BEDTIME; ORAL
     Route: 048
     Dates: end: 20061213
  2. CLONIDINE HCL [Suspect]
     Indication: ATTENTION DEFICIT/HYPERACTIVITY DISORDER
     Dosage: 0.05 MG; 3 TIMES A DAY; ORAL; 0.2 MG AT BEDTIME; ORAL
     Route: 048
     Dates: end: 20061213
  3. OPOIDS [Suspect]
  4. VALPROIC [Concomitant]
  5. CHLORPHENIRAMINE TAB [Concomitant]
  6. DEXTROMETHORPHAN HYDROBROMIDE [Concomitant]

REACTIONS (4)
  - DEPRESSED LEVEL OF CONSCIOUSNESS [None]
  - FOAMING AT MOUTH [None]
  - OVERDOSE [None]
  - PULSE ABSENT [None]
